FAERS Safety Report 12430571 (Version 1)
Quarter: 2016Q2

REPORT INFORMATION
  Report Type: Spontaneous
  Country: US (occurrence: US)
  Receive Date: 20160602
  Receipt Date: 20160602
  Transmission Date: 20160815
  Serious: No
  Sender: FDA-Public Use
  Company Number: US-ABBVIE-01P-163-0748464-00

PATIENT
  Age: 45 Year
  Sex: Male

DRUGS (3)
  1. MARINOL [Suspect]
     Active Substance: DRONABINOL
     Indication: WEIGHT DECREASED
  2. MARINOL [Suspect]
     Active Substance: DRONABINOL
     Indication: POST-TRAUMATIC STRESS DISORDER
     Route: 048
     Dates: start: 20011013, end: 20011014
  3. MARINOL [Suspect]
     Active Substance: DRONABINOL
     Indication: HYPERSENSITIVITY
     Route: 065
     Dates: start: 20111013, end: 2013

REACTIONS (2)
  - Diarrhoea [Recovered/Resolved]
  - Food allergy [Not Recovered/Not Resolved]

NARRATIVE: CASE EVENT DATE: 20011014
